FAERS Safety Report 5583062-8 (Version None)
Quarter: 2008Q1

REPORT INFORMATION
  Report Type: 
  Country: None (occurrence: None)
  Receive Date: 20080107
  Receipt Date: 20071220
  Transmission Date: 20080703
  Serious: Yes (Death)
  Sender: FDA-Public Use
  Company Number: B0500590A

PATIENT
  Age: 4 Year
  Sex: Male

DRUGS (2)
  1. MELPHALAN [Suspect]
     Indication: STEM CELL TRANSPLANT
     Dosage: 70MGM2 PER DAY
     Route: 042
  2. THIOTEPA [Suspect]
     Indication: STEM CELL TRANSPLANT
     Dosage: 200MGM2 PER DAY
     Route: 065

REACTIONS (13)
  - ASCITES [None]
  - BLOOD LACTATE DEHYDROGENASE INCREASED [None]
  - DYSPNOEA [None]
  - HAEMATEMESIS [None]
  - HAEMATOCHEZIA [None]
  - HAPTOGLOBIN DECREASED [None]
  - JAUNDICE [None]
  - LIVER TENDERNESS [None]
  - MULTI-ORGAN FAILURE [None]
  - PULMONARY HAEMORRHAGE [None]
  - RESPIRATORY FAILURE [None]
  - THROMBOTIC MICROANGIOPATHY [None]
  - VENOOCCLUSIVE LIVER DISEASE [None]
